FAERS Safety Report 11460405 (Version 1)
Quarter: 2015Q3

REPORT INFORMATION
  Report Type: Report from Study
  Country: BR (occurrence: BR)
  Receive Date: 20150904
  Receipt Date: 20150904
  Transmission Date: 20151125
  Serious: Yes (Other)
  Sender: FDA-Public Use
  Company Number: BR-BAYER-2015-411950

PATIENT
  Age: 59 Year
  Sex: Female

DRUGS (6)
  1. BETAFERON [Suspect]
     Active Substance: INTERFERON BETA-1B
     Indication: MULTIPLE SCLEROSIS
     Dosage: UNK QOD
     Route: 058
     Dates: start: 20130726, end: 20150413
  2. OMEGA [DOCOSAHEXANOIC ACID,EICOSAPENTAENOIC ACID] [Concomitant]
     Dosage: UNK
  3. ARTRODAR [Concomitant]
     Active Substance: DIACEREIN
     Indication: OSTEOARTHRITIS
     Dosage: UNK
     Route: 048
  4. VITAMIN D [Concomitant]
     Active Substance: CHOLECALCIFEROL
     Dosage: UNK
  5. BACLOFEN. [Suspect]
     Active Substance: BACLOFEN
     Indication: MUSCLE SPASMS
     Dosage: 1 DF, QD
     Route: 048
     Dates: start: 201407
  6. VITAMIN D [Concomitant]
     Active Substance: CHOLECALCIFEROL
     Dosage: 20000 IU, UNK
     Route: 048
     Dates: start: 20140401

REACTIONS (11)
  - Renal disorder [None]
  - Apathy [Recovering/Resolving]
  - Arthralgia [Recovered/Resolved with Sequelae]
  - Discomfort [None]
  - Fall [None]
  - Ankle fracture [Recovered/Resolved with Sequelae]
  - Fatigue [Recovering/Resolving]
  - Muscle spasms [Not Recovered/Not Resolved]
  - Kidney enlargement [None]
  - Depressed mood [Recovering/Resolving]
  - Fall [None]

NARRATIVE: CASE EVENT DATE: 20130726
